FAERS Safety Report 14239150 (Version 1)
Quarter: 2017Q4

REPORT INFORMATION
  Report Type: Report from Study
  Country: US (occurrence: US)
  Receive Date: 20171130
  Receipt Date: 20171130
  Transmission Date: 20180321
  Serious: Yes (Disabling)
  Sender: FDA-Public Use
  Company Number: US-ROCHE-1914102

PATIENT
  Age: 80 Year
  Sex: Male
  Weight: 74.91 kg

DRUGS (3)
  1. OXYGEN 100% [Concomitant]
     Active Substance: OXYGEN
     Dosage: ALL THE TIME. ;ONGOING: YES
     Route: 065
     Dates: start: 201703
  2. OXYGEN 100% [Concomitant]
     Active Substance: OXYGEN
     Dosage: ALL THE TIME ;ONGOING: NO
     Route: 065
     Dates: start: 20170211, end: 201703
  3. ESBRIET [Suspect]
     Active Substance: PIRFENIDONE
     Indication: IDIOPATHIC PULMONARY FIBROSIS
     Dosage: 3 CAPSULES 3 TIMES PER DAY. ;ONGOING: YES
     Route: 048
     Dates: start: 20170304

REACTIONS (13)
  - Oxygen saturation decreased [Unknown]
  - Depression [Unknown]
  - Dyspnoea [Not Recovered/Not Resolved]
  - Chills [Recovered/Resolved]
  - Fatigue [Recovered/Resolved with Sequelae]
  - Malaise [Not Recovered/Not Resolved]
  - Infection [Unknown]
  - Depression [Not Recovered/Not Resolved]
  - Pain in extremity [Recovered/Resolved]
  - Feeling abnormal [Not Recovered/Not Resolved]
  - Peripheral swelling [Recovering/Resolving]
  - Diarrhoea [Recovered/Resolved with Sequelae]
  - Tremor [Recovered/Resolved]

NARRATIVE: CASE EVENT DATE: 20170328
